FAERS Safety Report 8851089 (Version 2)
Quarter: 2012Q4

REPORT INFORMATION
  Report Type: 
  Country: US (occurrence: US)
  Receive Date: 20121019
  Receipt Date: 20121106
  Transmission Date: 20130627
  Serious: Yes (Death, Hospitalization)
  Sender: FDA-Public Use
  Company Number: US-BRISTOL-MYERS SQUIBB COMPANY-17031667

PATIENT
  Age: 67 Year
  Sex: Male

DRUGS (8)
  1. YERVOY [Suspect]
     Indication: MALIGNANT MELANOMA
     Route: 042
     Dates: start: 20120913
  2. ASPIRIN [Concomitant]
  3. DEXAMETHASONE [Concomitant]
  4. DOXAZOSIN [Concomitant]
  5. LISINOPRIL [Concomitant]
  6. PRAVASTATIN SODIUM [Concomitant]
  7. ZOFRAN [Concomitant]
  8. PROTONIX [Concomitant]

REACTIONS (2)
  - Death [Fatal]
  - Cerebrovascular accident [Unknown]
